FAERS Safety Report 16931660 (Version 5)
Quarter: 2021Q2

REPORT INFORMATION
  Report Type: Spontaneous
  Country: US (occurrence: US)
  Receive Date: 20191017
  Receipt Date: 20210401
  Transmission Date: 20210716
  Serious: Yes (Death, Hospitalization, Disabling, Other)
  Sender: FDA-Public Use
  Company Number: US-NAPPMUNDI-USA-2019-0148751

PATIENT
  Sex: Female

DRUGS (5)
  1. OXYCODONE/ ACETAMINOPHEN TABLETS [Suspect]
     Active Substance: ACETAMINOPHEN\OXYCODONE HYDROCHLORIDE
     Indication: PRODUCT USED FOR UNKNOWN INDICATION
     Dosage: UNK
     Route: 048
  2. OXYCONTIN [Suspect]
     Active Substance: OXYCODONE HYDROCHLORIDE
     Indication: PAIN
     Dosage: UNK
     Route: 048
     Dates: start: 2001, end: 2004
  3. HYDROCODONE BITARTRATE AND ACETAMINOPHEN [Suspect]
     Active Substance: ACETAMINOPHEN\HYDROCODONE BITARTRATE
     Indication: PRODUCT USED FOR UNKNOWN INDICATION
     Dosage: UNK
     Route: 048
  4. TRAMADOL CR TABLETS (RHODES 21?745) [Suspect]
     Active Substance: TRAMADOL
     Indication: PRODUCT USED FOR UNKNOWN INDICATION
     Dosage: UNK
     Route: 065
  5. OXYCODONE HCL TABLETS (RHODES 91?490) [Suspect]
     Active Substance: OXYCODONE HYDROCHLORIDE
     Indication: PRODUCT USED FOR UNKNOWN INDICATION
     Dosage: UNK
     Route: 048

REACTIONS (22)
  - Thrombosis [Unknown]
  - Agoraphobia [Unknown]
  - Illness [Unknown]
  - Eating disorder [Unknown]
  - Imprisonment [Unknown]
  - Thinking abnormal [Not Recovered/Not Resolved]
  - Alcoholism [Unknown]
  - Nightmare [Unknown]
  - Post-traumatic stress disorder [Not Recovered/Not Resolved]
  - Burning sensation [Unknown]
  - Maternal exposure during pregnancy [Recovered/Resolved]
  - Tooth loss [Unknown]
  - Fracture [Unknown]
  - Drug abuse [Unknown]
  - Road traffic accident [Unknown]
  - Splenic injury [Unknown]
  - Flashback [Unknown]
  - Cardiac disorder [Unknown]
  - Death [Fatal]
  - Drug dependence [Unknown]
  - Weight decreased [Unknown]
  - Vomiting [Unknown]

NARRATIVE: CASE EVENT DATE: 2001
